FAERS Safety Report 9602468 (Version 7)
Quarter: 2014Q1

REPORT INFORMATION
  Report Type: Spontaneous
  Country: US (occurrence: US)
  Receive Date: 20131007
  Receipt Date: 20140103
  Transmission Date: 20141002
  Serious: Yes (Hospitalization, Disabling, Other)
  Sender: FDA-Public Use
  Company Number: US-009507513-1310USA002840

PATIENT
  Sex: Male
  Weight: 74.38 kg

DRUGS (8)
  1. JANUVIA [Suspect]
     Indication: TYPE 2 DIABETES MELLITUS
     Dosage: 100 MG, QD
     Route: 048
     Dates: start: 20070509, end: 20090730
  2. AMLODIPINE BESYLATE [Concomitant]
     Dosage: 5 MG, QD
     Route: 048
  3. ASPIRIN [Concomitant]
     Dosage: 81 MG, QD
     Route: 048
  4. GLIPIZIDE (+) METFORMIN HYDROCHLORIDE [Concomitant]
     Indication: TYPE 2 DIABETES MELLITUS
     Dosage: 5-500 MG, BID
     Route: 048
     Dates: start: 20011023, end: 20120412
  5. GLIPIZIDE [Concomitant]
     Indication: TYPE 2 DIABETES MELLITUS
  6. METFORMIN [Concomitant]
     Indication: TYPE 2 DIABETES MELLITUS
  7. ACTOS [Concomitant]
     Indication: TYPE 2 DIABETES MELLITUS
     Dosage: 30 MG, QD
     Route: 048
  8. ACTOS [Concomitant]
     Dosage: 45 MG, QD
     Route: 048

REACTIONS (25)
  - Pancreatic carcinoma [Unknown]
  - Metastases to liver [Unknown]
  - Pulmonary embolism [Unknown]
  - Jaundice cholestatic [Unknown]
  - Intestinal mass [Unknown]
  - Hypertension [Unknown]
  - Hypercholesterolaemia [Unknown]
  - Sexual dysfunction [Unknown]
  - Depression [Unknown]
  - Stress [Unknown]
  - Blood disorder [Unknown]
  - Bone disorder [Unknown]
  - Inappropriate schedule of drug administration [Unknown]
  - Insulin-requiring type 2 diabetes mellitus [Unknown]
  - Increased insulin requirement [Unknown]
  - Neuropathy peripheral [Unknown]
  - Bile duct stent insertion [Unknown]
  - Blood glucose increased [Unknown]
  - Inadequate diet [Unknown]
  - Blood triglycerides increased [Unknown]
  - Osteoarthritis [Unknown]
  - Chronic sinusitis [Unknown]
  - Diabetes mellitus inadequate control [Unknown]
  - Sleep disorder [Unknown]
  - Device occlusion [Recovering/Resolving]
